FAERS Safety Report 8239335-3 (Version None)
Quarter: 2012Q1

REPORT INFORMATION
  Report Type: 
  Country: None (occurrence: None)
  Receive Date: 20120326
  Receipt Date: 20120313
  Transmission Date: 20120608
  Serious: Yes (Other)
  Sender: FDA-Public Use
  Company Number: 2012-00089

PATIENT
  Age: 85 Year
  Sex: Male

DRUGS (3)
  1. UNKNOWN PROSTATE MEDICATION [Concomitant]
  2. MULTI-VITAMIN [Concomitant]
  3. ZICAM COLD REMEDY PLUS ORAL MIST [Suspect]
     Indication: NASOPHARYNGITIS
     Dosage: SPRAYED 4 TIMES EVERY 3 HOURS
     Route: 055
     Dates: start: 20120308, end: 20120311

REACTIONS (2)
  - BLOOD PRESSURE INCREASED [None]
  - DIZZINESS [None]
